FAERS Safety Report 4875339-6 (Version None)
Quarter: 2006Q1

REPORT INFORMATION
  Report Type: 
  Country: None (occurrence: None)
  Receive Date: 20060109
  Receipt Date: 20051005
  Transmission Date: 20060701
  Serious: Yes (Life-Threatening, Hospitalization)
  Sender: FDA-Public Use
  Company Number: US-MERCK-0510USA03940

PATIENT
  Age: 69 Year
  Sex: Female
  Weight: 91 kg

DRUGS (9)
  1. VIOXX [Suspect]
     Indication: ARTHRITIS
     Route: 048
     Dates: start: 20000501, end: 20040101
  2. VIOXX [Suspect]
     Indication: PAIN
     Route: 048
     Dates: start: 20000501, end: 20040101
  3. INSULIN [Concomitant]
     Indication: DIABETES MELLITUS
     Route: 065
  4. PREVACID [Concomitant]
     Indication: GASTROOESOPHAGEAL REFLUX DISEASE
     Route: 065
  5. ASPIRIN [Concomitant]
     Route: 065
  6. FERROUS SULFATE [Concomitant]
     Indication: BLOOD IRON
     Route: 065
  7. LOTREL [Concomitant]
     Indication: HYPERTENSION
     Route: 065
  8. LASIX [Concomitant]
     Indication: HYPERTENSION
     Route: 065
  9. ALBUTEROL [Concomitant]
     Route: 065

REACTIONS (19)
  - ANAEMIA [None]
  - ARTERIOVENOUS MALFORMATION [None]
  - AZOTAEMIA [None]
  - CARDIAC FAILURE CONGESTIVE [None]
  - CARDIAC MURMUR [None]
  - CHEST PAIN [None]
  - CORONARY ARTERY DISEASE [None]
  - DIABETES MELLITUS NON-INSULIN-DEPENDENT [None]
  - DIARRHOEA [None]
  - DIVERTICULUM [None]
  - DYSPNOEA [None]
  - GASTRITIS EROSIVE [None]
  - GASTROENTERITIS [None]
  - GASTROINTESTINAL HAEMORRHAGE [None]
  - GOUT [None]
  - HYPOCHROMIC ANAEMIA [None]
  - MYOCARDIAL ISCHAEMIA [None]
  - OBESITY [None]
  - OSTEOARTHRITIS [None]
